FAERS Safety Report 6483391-X (Version None)
Quarter: 2009Q4

REPORT INFORMATION
  Report Type: 
  Country: None (occurrence: None)
  Receive Date: 20091123
  Receipt Date: 20090723
  Transmission Date: 20100525
  Serious: No
  Sender: FDA-Public Use
  Company Number: 8049364

PATIENT
  Age: 21 Year
  Sex: Female
  Weight: 46.4 kg

DRUGS (6)
  1. CIMZIA [Suspect]
     Indication: CROHN'S DISEASE
     Dosage: 400 MG SC
     Route: 058
     Dates: start: 20090709
  2. PREDNISONE TAB [Concomitant]
  3. ENTOCORT EC [Concomitant]
  4. XANAX [Concomitant]
  5. DIPHENOXYLATE [Concomitant]
  6. COLAZAL [Concomitant]

REACTIONS (4)
  - DEAFNESS [None]
  - DIZZINESS [None]
  - INJECTION SITE REACTION [None]
  - NAUSEA [None]
